FAERS Safety Report 5246204-X (Version None)
Quarter: 2007Q1

REPORT INFORMATION
  Report Type: 
  Country: None (occurrence: None)
  Receive Date: 20070220
  Receipt Date: 20070207
  Transmission Date: 20070707
  Serious: Yes (Disabling)
  Sender: FDA-Public Use
  Company Number: 2007JP000536

PATIENT
  Age: 33 Year
  Sex: Female

DRUGS (13)
  1. PROGRAF [Suspect]
     Indication: CORNEAL TRANSPLANT
     Dosage: 6  MG, D, ORAL; 5 MG, D, ORAL
     Route: 048
  2. ZOLPIDEM TARTRATE [Concomitant]
  3. LEXOTAN (BROMAZEPAM) [Concomitant]
  4. ALPRAZOLAM [Concomitant]
  5. FLUVOXAMINE MALEATE [Concomitant]
  6. TRAZODONE HCL [Concomitant]
  7. DORAL [Concomitant]
  8. LEVOTHYROXINE SODIUM [Concomitant]
  9. RINDERON [Concomitant]
  10. RINDERON EYE DROP [Concomitant]
  11. CHLORPROMAZINE HCL [Concomitant]
  12. CELLCEPT [Concomitant]
  13. CMPM [Concomitant]

REACTIONS (2)
  - CONVULSION [None]
  - DEPRESSED LEVEL OF CONSCIOUSNESS [None]
